FAERS Safety Report 21435162 (Version 2)
Quarter: 2023Q1

REPORT INFORMATION
  Report Type: Other
  Country: DE (occurrence: None)
  Receive Date: 20221010
  Receipt Date: 20230105
  Transmission Date: 20230418
  Serious: No
  Sender: FDA-Public Use
  Company Number: DE-ROCHE-2677818

PATIENT
  Age: 27 Year
  Sex: Female

DRUGS (9)
  1. OCREVUS [Suspect]
     Active Substance: OCRELIZUMAB
     Indication: Relapsing multiple sclerosis
     Route: 042
     Dates: start: 20200908
  2. OCREVUS [Suspect]
     Active Substance: OCRELIZUMAB
     Dosage: SECOND INFUSION
     Route: 042
     Dates: start: 20200924
  3. OCREVUS [Suspect]
     Active Substance: OCRELIZUMAB
     Route: 042
  4. OCREVUS [Suspect]
     Active Substance: OCRELIZUMAB
     Dosage: SUBSEQUENT 3RD MAINTENANCE DOSE  ON 31/MAR/2022
     Route: 042
  5. TALTZ [Concomitant]
     Active Substance: IXEKIZUMAB
  6. CHOLECALCIFEROL [Concomitant]
     Active Substance: CHOLECALCIFEROL
  7. IBUPROFEN [Concomitant]
     Active Substance: IBUPROFEN
  8. ACETAMINOPHEN [Concomitant]
     Active Substance: ACETAMINOPHEN
  9. SUMATRIPTAN [Concomitant]
     Active Substance: SUMATRIPTAN

REACTIONS (21)
  - Rhinorrhoea [Recovered/Resolved]
  - Sensation of foreign body [Recovered/Resolved]
  - Pyrexia [Recovered/Resolved]
  - Tonsillar inflammation [Recovered/Resolved]
  - Headache [Recovered/Resolved]
  - Initial insomnia [Recovered/Resolved]
  - Migraine [Recovered/Resolved]
  - Listless [Recovered/Resolved]
  - Stress [Recovered/Resolved]
  - Fatigue [Recovering/Resolving]
  - Chills [Recovered/Resolved]
  - Headache [Recovered/Resolved]
  - Tonsillitis [Recovered/Resolved]
  - Cystitis noninfective [Recovered/Resolved]
  - COVID-19 [Recovered/Resolved]
  - Sinusitis [Recovered/Resolved]
  - Toothache [Recovered/Resolved]
  - Pain in jaw [Recovered/Resolved]
  - Constipation [Not Recovered/Not Resolved]
  - Jaw fistula [Not Recovered/Not Resolved]
  - Arthralgia [Not Recovered/Not Resolved]

NARRATIVE: CASE EVENT DATE: 20200908
